FAERS Safety Report 5913761-7 (Version None)
Quarter: 2008Q4

REPORT INFORMATION
  Report Type: 
  Country: None (occurrence: None)
  Receive Date: 20081009
  Receipt Date: 20080930
  Transmission Date: 20090506
  Serious: Yes (Other)
  Sender: FDA-Public Use
  Company Number: NZ-NOVOPROD-280000

PATIENT
  Age: 58 Year
  Sex: Female

DRUGS (7)
  1. NOVORAPID [Suspect]
     Indication: TYPE 1 DIABETES MELLITUS
  2. PROTAPHANE                         /00646002/ [Concomitant]
  3. ACTRAPID                           /00646001/ [Concomitant]
  4. AUGMENTIN '125' [Concomitant]
  5. VERAPAMIL [Concomitant]
  6. SIMVASTATIN [Concomitant]
  7. PAROXETINE HCL [Concomitant]

REACTIONS (1)
  - HYPONATRAEMIA [None]
